FAERS Safety Report 7716495-1 (Version None)
Quarter: 2011Q3

REPORT INFORMATION
  Report Type: 
  Country: None (occurrence: None)
  Receive Date: 20110829
  Receipt Date: 20110823
  Transmission Date: 20111222
  Serious: Yes (Life-Threatening, Hospitalization)
  Sender: FDA-Public Use
  Company Number: GB-ASTRAZENECA-2011SE50416

PATIENT
  Age: 35 Year
  Sex: Male

DRUGS (2)
  1. QUETIAPINE [Suspect]
     Indication: SCHIZOPHRENIA
     Route: 048
     Dates: start: 20100901, end: 20110401
  2. MIRTAZAPINE [Concomitant]
     Indication: DEPRESSED MOOD
     Dates: start: 20100901, end: 20110401

REACTIONS (3)
  - CARDIAC FAILURE [None]
  - ELECTROCARDIOGRAM QT PROLONGED [None]
  - ARRHYTHMIA [None]
